FAERS Safety Report 5158226-8 (Version None)
Quarter: 2006Q4

REPORT INFORMATION
  Report Type: 
  Country: None (occurrence: None)
  Receive Date: 20061121
  Receipt Date: 20061121
  Transmission Date: 20070319
  Serious: Yes (Hospitalization)
  Sender: FDA-Public Use
  Company Number: None

PATIENT
  Sex: Male
  Weight: 83.5 kg

DRUGS (3)
  1. FLUOROURACIL [Suspect]
     Dosage: 2621 MG
     Dates: end: 20061111
  2. FLUOROURACIL [Suspect]
  3. ELOXATIN [Suspect]
     Dosage: 176.8 MG

REACTIONS (3)
  - ABDOMINAL PAIN [None]
  - CAECITIS [None]
  - NAUSEA [None]
